FAERS Safety Report 16025642 (Version 1)
Quarter: 2019Q1

REPORT INFORMATION
  Report Type: Spontaneous
  Country: FR (occurrence: FR)
  Receive Date: 20190302
  Receipt Date: 20190302
  Transmission Date: 20190418
  Serious: Yes (Death)
  Sender: FDA-Public Use
  Company Number: FR-ZYDUS-034135

PATIENT
  Age: 70 Year
  Sex: Female
  Weight: 120 kg

DRUGS (23)
  1. AMOXICILLIN SODIUM/CLAVULANATE POTASSIUM [Suspect]
     Active Substance: AMOXICILLIN\CLAVULANATE POTASSIUM
     Indication: LUNG DISORDER
     Dosage: 1 G / 200 MG ADULTS, POWDER FOR SOLUTION FOR INJECTION (I.V.)
     Route: 041
     Dates: start: 20190118, end: 20190123
  2. AMLODIPINE [Suspect]
     Active Substance: AMLODIPINE BESYLATE
     Indication: HYPERTENSION
     Dosage: R 5 MG CAPSULE
     Route: 048
     Dates: end: 20190123
  3. PREGABALIN. [Suspect]
     Active Substance: PREGABALIN
     Indication: DIABETIC NEUROPATHY
     Route: 048
     Dates: end: 20190123
  4. PHLOROGLUCINOL [Suspect]
     Active Substance: PHLOROGLUCINOL
     Indication: ABDOMINAL PAIN
     Route: 041
     Dates: start: 20190118, end: 20190121
  5. TRIMEBUTINE [Suspect]
     Active Substance: TRIMEBUTINE
     Indication: ABDOMINAL PAIN
     Route: 041
     Dates: start: 20190118, end: 20190123
  6. ENALAPRIL [Suspect]
     Active Substance: ENALAPRIL
     Indication: PRODUCT USED FOR UNKNOWN INDICATION
     Route: 048
     Dates: start: 20190116, end: 20190123
  7. EXEMESTANE. [Suspect]
     Active Substance: EXEMESTANE
     Indication: BREAST CANCER
     Route: 048
     Dates: end: 20190123
  8. OXAZEPAM. [Suspect]
     Active Substance: OXAZEPAM
     Indication: DEPRESSION
     Dosage: 10 MG TABLET
     Route: 048
     Dates: end: 20190123
  9. DALTEPARIN [Suspect]
     Active Substance: DALTEPARIN
     Indication: PROPHYLAXIS
     Route: 058
     Dates: start: 20190117, end: 20190123
  10. METHYLPREDNISOLONE. [Suspect]
     Active Substance: METHYLPREDNISOLONE
     Indication: PRODUCT USED FOR UNKNOWN INDICATION
     Route: 041
     Dates: start: 20190118, end: 20190123
  11. PARACETAMOL [Suspect]
     Active Substance: ACETAMINOPHEN
     Indication: PAIN
     Dosage: 1000 MG TABLET
     Route: 048
     Dates: end: 20190123
  12. INSULINE GLARGINE [Suspect]
     Active Substance: INSULIN GLARGINE
     Indication: TYPE 2 DIABETES MELLITUS
     Route: 058
     Dates: end: 20190123
  13. IPRATROPIUM [Suspect]
     Active Substance: IPRATROPIUM
     Indication: LUNG DISORDER
     Route: 055
     Dates: start: 20190116, end: 20190123
  14. SALBUTAMOL [Suspect]
     Active Substance: ALBUTEROL
     Indication: LUNG DISORDER
     Route: 055
     Dates: start: 20190116, end: 20190123
  15. IODIXANOL. [Suspect]
     Active Substance: IODIXANOL
     Indication: COMPUTERISED TOMOGRAM
     Dosage: IN TOTAL?320 MG D^I/ML, SOLUTION INJECTABLE
     Route: 041
     Dates: start: 20190116, end: 20190116
  16. FUROSEMIDE. [Concomitant]
     Active Substance: FUROSEMIDE
     Indication: PRODUCT USED FOR UNKNOWN INDICATION
     Route: 065
  17. METOCLOPRAMIDE. [Suspect]
     Active Substance: METOCLOPRAMIDE
     Indication: VOMITING
     Route: 041
     Dates: start: 20190118, end: 20190123
  18. CETIRIZINE (DICHLORHYDRATE DE) [Suspect]
     Active Substance: CETIRIZINE HYDROCHLORIDE
     Indication: PRODUCT USED FOR UNKNOWN INDICATION
     Route: 048
     Dates: end: 20190123
  19. METOPIMAZINE [Suspect]
     Active Substance: METOPIMAZINE
     Indication: VOMITING
     Route: 048
     Dates: end: 20190123
  20. INSULIN HUMAN [Suspect]
     Active Substance: INSULIN HUMAN
     Indication: TYPE 2 DIABETES MELLITUS
     Dosage: 100 IU / 1 ML, SOLUTION FOR INJECTION IN VIAL
     Route: 058
     Dates: end: 20190123
  21. METFORMIN [Suspect]
     Active Substance: METFORMIN HYDROCHLORIDE
     Indication: TYPE 2 DIABETES MELLITUS
     Route: 048
     Dates: end: 20190123
  22. PANTOPRAZOLE [Suspect]
     Active Substance: PANTOPRAZOLE
     Indication: ABDOMINAL PAIN
     Dosage: 20 MG, GASTRO-RESISTANT TABLET
     Route: 048
     Dates: start: 20190116, end: 20190123
  23. IOVERSOL [Suspect]
     Active Substance: IOVERSOL
     Indication: COMPUTERISED TOMOGRAM ABDOMEN
     Dosage: 350 MG D^I/ML, SOLUTION INJECTABLE EN FLACONC
     Route: 041
     Dates: start: 20190118, end: 20190118

REACTIONS (4)
  - Cardiac arrest [Fatal]
  - Lactic acidosis [Fatal]
  - Hyperkalaemia [Recovered/Resolved]
  - Acute kidney injury [Fatal]

NARRATIVE: CASE EVENT DATE: 20190123
